FAERS Safety Report 4457608-7 (Version None)
Quarter: 2004Q3

REPORT INFORMATION
  Report Type: 
  Country: None (occurrence: None)
  Receive Date: 20040921
  Receipt Date: 20040901
  Transmission Date: 20050211
  Serious: Yes (Life-Threatening, Hospitalization)
  Sender: FDA-Public Use
  Company Number: B0326971A

PATIENT
  Age: 20 Year

DRUGS (7)
  1. PL GRANULES (PL) [Suspect]
     Indication: UPPER RESPIRATORY TRACT INFLAMMATION
     Dosage: 750 MG/ORAL
     Route: 048
     Dates: start: 20040312, end: 20040312
  2. CEFDINIR CAPSULE (CEFDINIR) [Suspect]
     Indication: UPPER RESPIRATORY TRACT INFLAMMATION
     Dosage: ORAL
     Route: 048
     Dates: start: 20040310, end: 20040312
  3. PL GRANULES (PL) [Concomitant]
     Indication: NASOPHARYNGITIS
     Dosage: ORAL
     Route: 048
     Dates: start: 20040312, end: 20040312
  4. DICLOFENAC SODIUM (DICLOFENCAC SODIUM) [Suspect]
     Indication: PYREXIA
     Dosage: PER RECTUM
     Route: 054
     Dates: start: 20040312, end: 20040312
  5. LOXOPROFEN (LOXOPROFEN) [Concomitant]
     Indication: PYREXIA
     Dosage: ORAL
     Route: 048
     Dates: start: 20040301, end: 20040312
  6. REBAMIPIDE [Concomitant]
  7. TEPRENONE [Concomitant]

REACTIONS (9)
  - ACUTE RESPIRATORY FAILURE [None]
  - ASPARTATE AMINOTRANSFERASE INCREASED [None]
  - BLOOD ALKALINE PHOSPHATASE INCREASED [None]
  - BLOOD LACTATE DEHYDROGENASE INCREASED [None]
  - BLOOD PRESSURE SYSTOLIC DECREASED [None]
  - CYANOSIS [None]
  - GAMMA-GLUTAMYLTRANSFERASE INCREASED [None]
  - LUNG INFILTRATION [None]
  - VIRAL INFECTION [None]
